FAERS Safety Report 8602495-6 (Version None)
Quarter: 2012Q3

REPORT INFORMATION
  Report Type: 
  Country: None (occurrence: None)
  Receive Date: 20120817
  Receipt Date: 20120809
  Transmission Date: 20120928
  Serious: Yes (Other)
  Sender: FDA-Public Use
  Company Number: CA-ROCHE-GNE311972

PATIENT
  Sex: Male

DRUGS (5)
  1. FLUTICASONE PROPIONATE [Concomitant]
  2. ALVESCO [Concomitant]
     Indication: PRODUCT USED FOR UNKNOWN INDICATION
  3. PREDNISONE TAB [Concomitant]
  4. XOLAIR [Suspect]
     Indication: ASTHMA
     Route: 058
     Dates: start: 20100519
  5. SINGULAIR [Concomitant]
     Indication: PRODUCT USED FOR UNKNOWN INDICATION

REACTIONS (7)
  - WHEEZING [None]
  - NASOPHARYNGITIS [None]
  - SINUSITIS [None]
  - VIRAL INFECTION [None]
  - ASTHMA [None]
  - PNEUMONIA [None]
  - BRONCHITIS [None]
